FAERS Safety Report 17717901 (Version 1)
Quarter: 2020Q2

REPORT INFORMATION
  Report Type: Spontaneous
  Country: US (occurrence: US)
  Receive Date: 20200428
  Receipt Date: 20200428
  Transmission Date: 20200714
  Serious: Yes (Other)
  Sender: FDA-Public Use
  Company Number: US-STRIDES ARCOLAB LIMITED-2020SP005120

PATIENT
  Sex: Female

DRUGS (3)
  1. DIPHENHYDRAMINE HCL + IBUPROFEN CAPSULES 25 MG/200 MG [Suspect]
     Active Substance: DIPHENHYDRAMINE HYDROCHLORIDE\IBUPROFEN
     Indication: SLEEP DISORDER
     Dosage: 1 DOSAGE FORM, AT BED TIME (CAPSULE)
     Route: 048
     Dates: start: 20200327
  2. DIPHENHYDRAMINE HCL + IBUPROFEN CAPSULES 25 MG/200 MG [Suspect]
     Active Substance: DIPHENHYDRAMINE HYDROCHLORIDE\IBUPROFEN
     Indication: FATIGUE
  3. DIPHENHYDRAMINE HCL + IBUPROFEN CAPSULES 25 MG/200 MG [Suspect]
     Active Substance: DIPHENHYDRAMINE HYDROCHLORIDE\IBUPROFEN
     Indication: BACK PAIN

REACTIONS (4)
  - Dyspnoea [Recovered/Resolved]
  - Throat irritation [Recovered/Resolved]
  - Bronchospasm [Recovered/Resolved]
  - Drug hypersensitivity [Recovered/Resolved]

NARRATIVE: CASE EVENT DATE: 20200327
